FAERS Safety Report 5270405-8 (Version None)
Quarter: 2007Q1

REPORT INFORMATION
  Report Type: 
  Country: None (occurrence: None)
  Receive Date: 20070320
  Receipt Date: 20070309
  Transmission Date: 20070707
  Serious: Yes (Other)
  Sender: FDA-Public Use
  Company Number: US-PFIZER INC-2007018700

PATIENT
  Sex: Male
  Weight: 93.4 kg

DRUGS (10)
  1. TIKOSYN [Suspect]
     Indication: ATRIAL FIBRILLATION
  2. ACTOS [Concomitant]
     Indication: DIABETES MELLITUS NON-INSULIN-DEPENDENT
  3. WARFARIN SODIUM [Concomitant]
  4. ISOSORBIDE [Concomitant]
  5. LOVASTATIN [Concomitant]
  6. DIGOXIN [Concomitant]
  7. METOPROLOL SUCCINATE [Concomitant]
  8. FUROSEMIDE [Concomitant]
  9. PRECOSE [Concomitant]
     Indication: DIABETES MELLITUS NON-INSULIN-DEPENDENT
  10. SITAGLIPTIN [Concomitant]
     Indication: DIABETES MELLITUS NON-INSULIN-DEPENDENT

REACTIONS (1)
  - BLOOD GLUCOSE INCREASED [None]
